FAERS Safety Report 9672015 (Version 2)
Quarter: 2014Q4

REPORT INFORMATION
  Report Type: Spontaneous
  Country: US (occurrence: US)
  Receive Date: 20131106
  Receipt Date: 20141223
  Transmission Date: 20150529
  Serious: Yes (Hospitalization, Other)
  Sender: FDA-Public Use
  Company Number: US-GLAXOSMITHKLINE-A1048525A

PATIENT
  Age: 70 Year
  Sex: Female

DRUGS (1)
  1. PROMACTA [Suspect]
     Active Substance: ELTROMBOPAG OLAMINE
     Indication: NEOPLASM MALIGNANT
     Dosage: UNKNOWN DOSING. 25 MG AND 50 MG TABLET REPORTED.
     Route: 065
     Dates: start: 20130424

REACTIONS (3)
  - Hospitalisation [Unknown]
  - Platelet count decreased [Unknown]
  - Malaise [Unknown]

NARRATIVE: CASE EVENT DATE: 201408
